FAERS Safety Report 5098277-5 (Version None)
Quarter: 2006Q3

REPORT INFORMATION
  Report Type: 
  Country: None (occurrence: None)
  Receive Date: 20060906
  Receipt Date: 20060620
  Transmission Date: 20061208
  Serious: No
  Sender: FDA-Public Use
  Company Number: US-GLAXOSMITHKLINE-A0609726A

PATIENT
  Age: 50 Year
  Sex: Female

DRUGS (11)
  1. REQUIP [Suspect]
     Indication: RESTLESS LEGS SYNDROME
     Dosage: .5MG PER DAY
     Route: 048
  2. CYMBALTA [Concomitant]
  3. FLONASE [Concomitant]
  4. HYDROCHLOROTHIAZIDE [Concomitant]
  5. PREMARIN CREAM [Concomitant]
  6. PRIMIDONE [Concomitant]
  7. WELLBUTRIN SR [Concomitant]
  8. AMBIEN [Concomitant]
  9. DARVOCET [Concomitant]
  10. FLEXERIL [Concomitant]
  11. ZYDONE [Concomitant]

REACTIONS (1)
  - PAIN IN EXTREMITY [None]
